FAERS Safety Report 8001192-8 (Version None)
Quarter: 2011Q4

REPORT INFORMATION
  Report Type: 
  Country: None (occurrence: None)
  Receive Date: 20111219
  Receipt Date: 20111205
  Transmission Date: 20120403
  Serious: Yes (Hospitalization, Other)
  Sender: FDA-Public Use
  Company Number: 2011MA017210

PATIENT
  Age: 77 Year
  Sex: Female
  Weight: 50.3493 kg

DRUGS (28)
  1. LOMOTIL [Concomitant]
  2. LOPRESSOR [Concomitant]
  3. MULTI-VITAMIN [Concomitant]
  4. DIGOXIN [Suspect]
     Indication: ATRIAL FIBRILLATION
     Dosage: 0.25 MG;QD;PO
     Route: 048
     Dates: start: 20080131
  5. RYTHMOL [Concomitant]
  6. DIOVAN [Concomitant]
  7. TAMBOCOR [Concomitant]
  8. ORETIC [Concomitant]
  9. METOPROLOL SUCCINATE [Concomitant]
  10. PRAVACHOL [Concomitant]
  11. ASPIRIN [Concomitant]
  12. PRAVASTATIN [Concomitant]
  13. FISH OIL [Concomitant]
  14. PROPAFENONE HCL [Concomitant]
  15. MENEST [Concomitant]
  16. SODIUM CHLORIDE [Concomitant]
  17. POTASSIUM CHLORIDE [Concomitant]
  18. TRILYTE [Concomitant]
  19. FLECAINIDE ACETATE [Concomitant]
  20. MECLIZINE [Concomitant]
  21. HYDROCHLOROTHIAZIDE [Concomitant]
  22. COUMADIN [Concomitant]
  23. DOXYCYCLINE [Concomitant]
  24. GLUCOSAMINE [Concomitant]
  25. ZOLOFT [Concomitant]
  26. REGLAN [Concomitant]
  27. FERROUS SULFATE TAB [Concomitant]
  28. APAP TAB [Concomitant]

REACTIONS (43)
  - HYPOTENSION [None]
  - DEPRESSION [None]
  - DEHYDRATION [None]
  - AORTIC STENOSIS [None]
  - HYPERKALAEMIA [None]
  - ATRIAL FIBRILLATION [None]
  - HYPERTENSION [None]
  - NAUSEA [None]
  - CARDIAC DISORDER [None]
  - DECREASED APPETITE [None]
  - MYOCARDIAL ISCHAEMIA [None]
  - DRUG INTERACTION [None]
  - MITRAL VALVE DISEASE MIXED [None]
  - FATIGUE [None]
  - DIARRHOEA [None]
  - WEIGHT DECREASED [None]
  - ASTHENIA [None]
  - HYPOKALAEMIA [None]
  - RENAL FAILURE ACUTE [None]
  - COUGH [None]
  - VOMITING [None]
  - IRRITABLE BOWEL SYNDROME [None]
  - HEADACHE [None]
  - GOUT [None]
  - SPONDYLOLYSIS [None]
  - SPINAL COMPRESSION FRACTURE [None]
  - ATRIOVENTRICULAR BLOCK FIRST DEGREE [None]
  - INTERNATIONAL NORMALISED RATIO INCREASED [None]
  - LABORATORY TEST INTERFERENCE [None]
  - FOOT FRACTURE [None]
  - BUNDLE BRANCH BLOCK LEFT [None]
  - PULMONARY HYPERTENSION [None]
  - DIZZINESS [None]
  - HYPERLIPIDAEMIA [None]
  - MITRAL VALVE INCOMPETENCE [None]
  - SINUS BRADYCARDIA [None]
  - ANKLE FRACTURE [None]
  - BRONCHITIS [None]
  - AORTIC ARTERIOSCLEROSIS [None]
  - CARDIAC MURMUR [None]
  - VERTIGO [None]
  - TOXICITY TO VARIOUS AGENTS [None]
  - MALNUTRITION [None]
